FAERS Safety Report 8383216 (Version 2)
Quarter: 2015Q1

REPORT INFORMATION
  Report Type: Spontaneous
  Country: FI (occurrence: FI)
  Receive Date: 20120201
  Receipt Date: 20150224
  Transmission Date: 20150721
  Serious: Yes (Other)
  Sender: FDA-Public Use
  Company Number: FI-PFIZER INC-2011301890

PATIENT
  Sex: Female

DRUGS (1)
  1. LIPITOR [Suspect]
     Active Substance: ATORVASTATIN CALCIUM
     Dosage: UNK

REACTIONS (12)
  - Visual acuity reduced [Recovered/Resolved]
  - Pancreatitis [Recovered/Resolved]
  - Renal failure [Unknown]
  - Memory impairment [Recovered/Resolved]
  - Weight increased [Recovered/Resolved]
  - Back disorder [Recovered/Resolved]
  - Vomiting [Unknown]
  - Fatigue [Recovered/Resolved]
  - Cardiac disorder [Unknown]
  - Pancreatic cyst [Recovered/Resolved]
  - Nasal congestion [Recovered/Resolved]
  - Poor quality sleep [Recovered/Resolved]

NARRATIVE: CASE EVENT DATE: 20060907
